FAERS Safety Report 10163720 (Version 1)
Quarter: 2014Q2

REPORT INFORMATION
  Report Type: Report from Study
  Country: DE (occurrence: NL)
  Receive Date: 20140509
  Receipt Date: 20140509
  Transmission Date: 20141212
  Serious: Yes (Hospitalization, Other)
  Sender: FDA-Public Use
  Company Number: DE-ACTELION-A-US2012-98298

PATIENT
  Age: 66 Year
  Sex: Female

DRUGS (1)
  1. VENTAVIS [Suspect]
     Indication: PRODUCT USED FOR UNKNOWN INDICATION
     Dosage: 6 AMPOULES DAILY DOSE
     Route: 055
     Dates: end: 201205

REACTIONS (2)
  - Organ transplant [Unknown]
  - Hospitalisation [Unknown]
